FAERS Safety Report 8332820-5 (Version None)
Quarter: 2012Q1

REPORT INFORMATION
  Report Type: 
  Country: None (occurrence: None)
  Receive Date: 20120315
  Receipt Date: 20110601
  Transmission Date: 20120608
  Serious: No
  Sender: FDA-Public Use
  Company Number: PHHY2011US48767

PATIENT
  Age: 43 Year
  Sex: Male

DRUGS (2)
  1. MULTIVITAMIN [Concomitant]
  2. GILENYA [Suspect]
     Dosage: 0.5 MG, QD, ORAL
     Route: 048

REACTIONS (1)
  - ACCIDENTAL EXPOSURE [None]
